APPROVED DRUG PRODUCT: RENVELA
Active Ingredient: SEVELAMER CARBONATE
Strength: 800MG/PACKET
Dosage Form/Route: FOR SUSPENSION;ORAL
Application: N022318 | Product #001 | TE Code: AB
Applicant: GENZYME CORP
Approved: Aug 12, 2009 | RLD: Yes | RS: No | Type: RX

PATENTS:
Patent 9095509 | Expires: Dec 6, 2030